FAERS Safety Report 6964462-8 (Version None)
Quarter: 2010Q3

REPORT INFORMATION
  Report Type: 
  Country: None (occurrence: None)
  Receive Date: 20100903
  Receipt Date: 20100823
  Transmission Date: 20110219
  Serious: Yes (Other)
  Sender: FDA-Public Use
  Company Number: US-PFIZER INC-2010109631

PATIENT
  Sex: Female

DRUGS (1)
  1. TOVIAZ [Suspect]
     Indication: CYSTITIS

REACTIONS (6)
  - AGITATION [None]
  - CHEST DISCOMFORT [None]
  - HEART RATE ABNORMAL [None]
  - HYPERSENSITIVITY [None]
  - LIMB DISCOMFORT [None]
  - PRURITUS [None]
